FAERS Safety Report 7555355-6 (Version None)
Quarter: 2011Q2

REPORT INFORMATION
  Report Type: 
  Country: None (occurrence: None)
  Receive Date: 20110617
  Receipt Date: 20110602
  Transmission Date: 20111010
  Serious: No
  Sender: FDA-Public Use
  Company Number: US-B.I. PHARMACEUTICALS,INC./RIDGEFIELD-2011-BP-03058BP

PATIENT
  Age: 70 Year
  Sex: Male

DRUGS (9)
  1. PRAVASTATIN [Concomitant]
     Indication: BLOOD CHOLESTEROL INCREASED
  2. METOPROLOL TARTRATE [Concomitant]
     Indication: CARDIAC DISORDER
  3. SIMVASTATIN [Concomitant]
     Dosage: 40 MG
  4. PRADAXA [Suspect]
     Indication: ATRIAL FIBRILLATION
     Dosage: 300 MG
     Route: 048
     Dates: start: 20110101
  5. HYDROCODONE [Concomitant]
     Indication: SPINAL OSTEOARTHRITIS
  6. CARVEDILOL [Concomitant]
     Dosage: 12.5 MG
  7. METFORMIN HCL [Concomitant]
     Dosage: 2000 MG
  8. MAGNESIUM OXIDE [Concomitant]
     Dosage: 400 MG
  9. PRADAXA [Suspect]
     Indication: CARDIAC DISORDER

REACTIONS (1)
  - INSOMNIA [None]
